FAERS Safety Report 8832895 (Version 1)
Quarter: 2012Q4

REPORT INFORMATION
  Report Type: 
  Country: US (occurrence: US)
  Receive Date: 20121010
  Receipt Date: 20121010
  Transmission Date: 20130627
  Serious: Yes (Hospitalization)
  Sender: FDA-Public Use
  Company Number: US-ELI_LILLY_AND_COMPANY-US201001000015

PATIENT
  Age: 75 None
  Sex: Female

DRUGS (10)
  1. FORTEO [Suspect]
     Indication: OSTEOPOROSIS
     Dosage: 20 ug, daily (1/D)
     Dates: start: 200904, end: 200912
  2. FORTEO [Suspect]
     Dosage: 20 ug, qd
     Dates: start: 201201
  3. PROTONIX [Concomitant]
     Dosage: 40 mg, qd
  4. NORPACE [Concomitant]
     Dosage: 300 mg, bid
  5. COUMADIN [Concomitant]
     Dosage: 5 mg, 4/W
  6. COUMADIN [Concomitant]
     Dosage: 7.5 mg, 3/W
  7. PEPCID [Concomitant]
     Dosage: 40 mg, qd
  8. METOPROLOL [Concomitant]
     Dosage: 25 mg, bid
  9. ASPIRIN [Concomitant]
     Dosage: 81 mg, qd
  10. DIOVAN [Concomitant]
     Dosage: 160 mg, qd

REACTIONS (12)
  - Spinal fracture [Unknown]
  - Pruritus generalised [Recovering/Resolving]
  - Injection site pruritus [Recovering/Resolving]
  - Hypersensitivity [Recovered/Resolved]
  - Rash [Recovered/Resolved]
  - Rash macular [Unknown]
  - Rash pruritic [Recovered/Resolved]
  - Rash [Recovered/Resolved]
  - Herpes virus infection [Unknown]
  - Rash [Not Recovered/Not Resolved]
  - Medication error [Unknown]
  - Drug dose omission [Unknown]
